FAERS Safety Report 9864489 (Version 1)
Quarter: 2014Q1

REPORT INFORMATION
  Report Type: Spontaneous
  Country: US (occurrence: US)
  Receive Date: 20140203
  Receipt Date: 20140203
  Transmission Date: 20141002
  Serious: No
  Sender: FDA-Public Use
  Company Number: US-AMGEN-USASP2014002364

PATIENT
  Age: 57 Year
  Sex: Male

DRUGS (3)
  1. ENBREL [Suspect]
     Indication: RHEUMATOID ARTHRITIS
     Dosage: UNK
     Route: 065
  2. PREDNISONE [Concomitant]
     Dosage: 5 MG, QD
  3. PLAQUENIL                          /00072602/ [Concomitant]
     Dosage: UNK

REACTIONS (19)
  - Dyspnoea [Unknown]
  - C-reactive protein increased [Unknown]
  - Musculoskeletal discomfort [Unknown]
  - Joint swelling [Unknown]
  - Arthralgia [Unknown]
  - Fatigue [Unknown]
  - Pleural fibrosis [Unknown]
  - Anti-cyclic citrullinated peptide antibody [Unknown]
  - Glucose urine [Unknown]
  - Protein urine [Unknown]
  - Wheezing [Not Recovered/Not Resolved]
  - Drug ineffective [Unknown]
  - Neck pain [Unknown]
  - Hypotension [Unknown]
  - Cough [Not Recovered/Not Resolved]
  - Panic attack [Recovered/Resolved]
  - Respiratory tract congestion [Not Recovered/Not Resolved]
  - Immune system disorder [Not Recovered/Not Resolved]
  - Upper respiratory tract infection [Not Recovered/Not Resolved]
